FAERS Safety Report 16191864 (Version 2)
Quarter: 2019Q2

REPORT INFORMATION
  Report Type: Spontaneous
  Country: NL (occurrence: NL)
  Receive Date: 20190412
  Receipt Date: 20190425
  Transmission Date: 20190711
  Serious: Yes (Hospitalization)
  Sender: FDA-Public Use
  Company Number: NL-MYLANLABS-2019M1034258

PATIENT
  Sex: Female

DRUGS (2)
  1. EZETROL [Concomitant]
     Active Substance: EZETIMIBE
     Dosage: UNK
     Route: 048
  2. SIMVASTATIN. [Suspect]
     Active Substance: SIMVASTATIN
     Indication: PRODUCT USED FOR UNKNOWN INDICATION
     Dosage: UNK
     Route: 048
     Dates: start: 1999

REACTIONS (4)
  - Contraindicated product administered [Unknown]
  - Rash [Unknown]
  - Gait inability [Unknown]
  - Jaundice [Unknown]

NARRATIVE: CASE EVENT DATE: 1999
